FAERS Safety Report 11506868 (Version 1)
Quarter: 2015Q3

REPORT INFORMATION
  Report Type: Spontaneous
  Country: CA (occurrence: None)
  Receive Date: 20150914
  Receipt Date: 20150914
  Transmission Date: 20151125
  Serious: No
  Sender: FDA-Public Use
  Company Number: None

PATIENT
  Age: 29 Year
  Sex: Female
  Weight: 52.16 kg

DRUGS (4)
  1. LAMICTAL [Concomitant]
     Active Substance: LAMOTRIGINE
  2. FISH OIL [Concomitant]
     Active Substance: FISH OIL
  3. LAMOTRIGINE 100MG MYLAN [Suspect]
     Active Substance: LAMOTRIGINE
     Indication: CYCLOTHYMIC DISORDER
     Dosage: 1 PILL
     Route: 048
     Dates: start: 20150401, end: 20150826
  4. MULTIVITAMIN [Concomitant]
     Active Substance: VITAMINS

REACTIONS (7)
  - Suicidal ideation [None]
  - Drug withdrawal syndrome [None]
  - Decreased appetite [None]
  - Gastrointestinal pain [None]
  - Alopecia [None]
  - Nausea [None]
  - Skin disorder [None]
